FAERS Safety Report 4438230-5 (Version None)
Quarter: 2004Q3

REPORT INFORMATION
  Report Type: 
  Country: None (occurrence: None)
  Receive Date: 20040831
  Receipt Date: 20040623
  Transmission Date: 20050211
  Serious: No
  Sender: FDA-Public Use
  Company Number: US-GLAXOSMITHKLINE-A0515753A

PATIENT
  Age: 25 Year
  Sex: Female

DRUGS (3)
  1. WELLBUTRIN XL [Suspect]
     Dosage: 150MG PER DAY
     Route: 048
     Dates: start: 20040609, end: 20040626
  2. ORTHO TRI-CYCLEN [Concomitant]
     Dosage: 1TAB PER DAY
  3. NORTRIPTYLINE HCL [Concomitant]
     Indication: HEADACHE
     Dosage: 50MG AT NIGHT
     Dates: start: 20040507

REACTIONS (2)
  - MENORRHAGIA [None]
  - MENSTRUAL DISORDER [None]
